FAERS Safety Report 6689204-5 (Version None)
Quarter: 2010Q2

REPORT INFORMATION
  Report Type: 
  Country: None (occurrence: None)
  Receive Date: 20100414
  Receipt Date: 20100402
  Transmission Date: 20101027
  Serious: Yes (Other)
  Sender: FDA-Public Use
  Company Number: WAES1004USA00474B1

PATIENT
  Sex: Female
  Weight: 0.7 kg

DRUGS (4)
  1. ISENTRESS [Suspect]
     Indication: HIV INFECTION
     Dosage: 800
  2. NORVIR [Suspect]
     Dosage: 100
  3. PREZISTA [Suspect]
     Dosage: 800 MG/ DAILY/ TRANSPLACENTAL
     Route: 064
  4. TRUVADA [Concomitant]
     Dosage: 500 MG/ DAILY TRANSPLACENTAL
     Route: 064

REACTIONS (3)
  - MATERNAL DRUGS AFFECTING FOETUS [None]
  - PREMATURE BABY [None]
  - SMALL FOR DATES BABY [None]
